FAERS Safety Report 7495404-7 (Version None)
Quarter: 2011Q2

REPORT INFORMATION
  Report Type: 
  Country: None (occurrence: None)
  Receive Date: 20110513
  Receipt Date: 20110503
  Transmission Date: 20111010
  Serious: Yes (Other)
  Sender: FDA-Public Use
  Company Number: BR-001650

PATIENT
  Sex: Male
  Weight: 18.5 kg

DRUGS (3)
  1. NAGLAZYME [Suspect]
     Indication: MUCOPOLYSACCHARIDOSIS VI
     Dosage: (1 MG/KG 1X/WEEK INTRVANEOUS DRIP)
     Route: 041
  2. DEXCHLORPHENIRAMINE MALEATE [Concomitant]
  3. ACETAMINOPHEN [Concomitant]

REACTIONS (4)
  - KYPHOSIS [None]
  - CEREBRAL VENTRICLE DILATATION [None]
  - CERVICAL CORD COMPRESSION [None]
  - ABASIA [None]
